FAERS Safety Report 18616781 (Version 2)
Quarter: 2020Q4

REPORT INFORMATION
  Report Type: Report from Study
  Country: DE (occurrence: DE)
  Receive Date: 20201215
  Receipt Date: 20201218
  Transmission Date: 20210114
  Serious: Yes (Hospitalization, Disabling, Other)
  Sender: FDA-Public Use
  Company Number: DE-JNJFOC-20201221812

PATIENT
  Age: 74 Year
  Sex: Female
  Weight: 73 kg

DRUGS (30)
  1. RIVAROXABAN [Suspect]
     Active Substance: RIVAROXABAN
     Indication: CARDIOVASCULAR EVENT PROPHYLAXIS
     Dosage: 2.5 MG, BID
     Route: 048
     Dates: start: 20190603, end: 20190702
  2. BISOPROLOL [Concomitant]
     Active Substance: BISOPROLOL
     Dosage: 5 UNK
     Dates: start: 20200311
  3. ALLOPURINOL. [Concomitant]
     Active Substance: ALLOPURINOL
     Dosage: 100 MG, QD
     Dates: start: 2014
  4. SPIRONOLACTON [Concomitant]
     Active Substance: SPIRONOLACTONE
     Dosage: 25 MG, QD
     Dates: start: 20200723
  5. SIMVASTATIN. [Concomitant]
     Active Substance: SIMVASTATIN
     Dosage: 30 UNK
     Dates: start: 20200723, end: 20200818
  6. IBUPROFEN. [Concomitant]
     Active Substance: IBUPROFEN
     Dosage: 600 MG, PRN
     Dates: start: 201901
  7. L-THYROXIN [LEVOTHYROXINE] [Concomitant]
     Active Substance: LEVOTHYROXINE SODIUM
     Dosage: 50 UG, QD
     Dates: start: 2014, end: 20200310
  8. FERROSANOL [Concomitant]
     Active Substance: FERROUS GLUCONATE
     Dosage: 100 MG, BID
     Dates: start: 20200311
  9. ACTILYSE [Concomitant]
     Active Substance: ALTEPLASE
     Dosage: 10 MG, QD
     Dates: start: 20200722, end: 20200723
  10. SIMVASTATIN. [Concomitant]
     Active Substance: SIMVASTATIN
     Dosage: 20 UNK
     Dates: start: 20200311, end: 20200722
  11. SIMVASTATIN. [Concomitant]
     Active Substance: SIMVASTATIN
     Dosage: 40 UNK
     Dates: start: 20200819
  12. ALENDRONIC ACID [Concomitant]
     Active Substance: ALENDRONIC ACID
     Dosage: 70 MG
     Dates: start: 2014
  13. MOXONIDIN [Concomitant]
     Active Substance: MOXONIDINE
     Dosage: 0.2 MG, QD
     Dates: start: 20200311
  14. PROSTAVASIN [Concomitant]
     Active Substance: ALPROSTADIL ALFADEX
     Dosage: 250 ML, BID
     Dates: start: 20200722, end: 20200723
  15. RIVAROXABAN [Suspect]
     Active Substance: RIVAROXABAN
     Indication: PERIPHERAL ARTERIAL OCCLUSIVE DISEASE
     Dosage: 2.5 MG, BID
     Route: 048
     Dates: start: 20200330, end: 20200720
  16. ASA [Suspect]
     Active Substance: ASPIRIN
     Indication: CARDIOVASCULAR EVENT PROPHYLAXIS
     Dosage: 100 MG, QD
     Route: 065
     Dates: start: 2014
  17. ASA [Suspect]
     Active Substance: ASPIRIN
     Indication: CORONARY ARTERY DISEASE
  18. ERYTHROCYTES [Concomitant]
     Active Substance: HUMAN RED BLOOD CELL
     Dosage: 2 DF, QD
     Dates: start: 20200815, end: 20200816
  19. RIVAROXABAN [Suspect]
     Active Substance: RIVAROXABAN
     Indication: CORONARY ARTERY DISEASE
     Dosage: 2.5 MG, BID
     Route: 048
     Dates: start: 20190711, end: 20200311
  20. SIMVASTATIN. [Concomitant]
     Active Substance: SIMVASTATIN
     Dosage: 20 UNK
     Dates: start: 20190711, end: 20190909
  21. SIMVASTATIN. [Concomitant]
     Active Substance: SIMVASTATIN
     Dosage: 30 UNK
     Dates: start: 20190910, end: 20200310
  22. COLECALCIFEROL [Concomitant]
     Active Substance: CHOLECALCIFEROL
     Dosage: 20000 IU
     Dates: start: 2014
  23. LOSARTAN. [Concomitant]
     Active Substance: LOSARTAN
     Dosage: 100 MG, QD
     Dates: start: 2004
  24. VITAMIN B-KOMPLEX FORTE [Concomitant]
     Indication: PRODUCT USED FOR UNKNOWN INDICATION
     Dosage: 150.50 MG, QD
     Dates: start: 20200311
  25. PANTOPRAZOL [PANTOPRAZOLE] [Concomitant]
     Active Substance: PANTOPRAZOLE
     Dosage: 40 MG, QD
     Dates: start: 20200815
  26. HEPARIN [Concomitant]
     Active Substance: HEPARIN SODIUM
     Dosage: 5000 IU, TID
     Dates: start: 20200722, end: 20200724
  27. ASA [Suspect]
     Active Substance: ASPIRIN
     Indication: PERIPHERAL ARTERIAL OCCLUSIVE DISEASE
  28. BISOPROLOL [Concomitant]
     Active Substance: BISOPROLOL
     Dosage: 5 MG, BID
     Dates: start: 2004, end: 20200310
  29. SIMVASTATIN. [Concomitant]
     Active Substance: SIMVASTATIN
     Dosage: 5 MG, QD
     Dates: start: 201902, end: 20190710
  30. VITAMIN B12 [Concomitant]
     Active Substance: CYANOCOBALAMIN
     Dosage: 1000 UG, QD
     Dates: start: 20200311

REACTIONS (7)
  - Cardiovascular disorder [Unknown]
  - Cardiovascular disorder [Unknown]
  - Intermittent claudication [Not Recovered/Not Resolved]
  - Iron deficiency anaemia [Recovered/Resolved]
  - Anaemia [Recovered/Resolved]
  - Peripheral ischaemia [Unknown]
  - Anaemia vitamin B12 deficiency [Recovered/Resolved]

NARRATIVE: CASE EVENT DATE: 20200305
